FAERS Safety Report 8101546-5 (Version None)
Quarter: 2012Q1

REPORT INFORMATION
  Report Type: 
  Country: None (occurrence: None)
  Receive Date: 20120129
  Receipt Date: 20110916
  Transmission Date: 20120608
  Serious: No
  Sender: FDA-Public Use
  Company Number: US-ABBOTT-11P-163-0855775-00

PATIENT
  Age: 41 Year
  Sex: Female

DRUGS (7)
  1. HUMIRA [Suspect]
     Indication: PSORIASIS
     Dates: start: 20110824
  2. VESICARE [Concomitant]
     Indication: URINARY INCONTINENCE
  3. OMEPRAZOLE [Concomitant]
     Indication: GASTROOESOPHAGEAL REFLUX DISEASE
  4. SUDAFED 12 HOUR [Concomitant]
     Indication: SEASONAL ALLERGY
     Dosage: OVER THE COUNTER
  5. ZYRTEC [Concomitant]
     Indication: SEASONAL ALLERGY
  6. FLEXERIL [Concomitant]
     Indication: MUSCLE SPASMS
     Dosage: PRESCRIBED AS 5MG THREE TIMES A DAY
  7. PHENAZOTYRIDINE [Concomitant]
     Indication: AUTOMATIC BLADDER
     Dosage: AT BEDTIME

REACTIONS (1)
  - EAR INFECTION [None]
